FAERS Safety Report 7189955-2 (Version None)
Quarter: 2010Q4

REPORT INFORMATION
  Report Type: 
  Country: None (occurrence: None)
  Receive Date: 20101223
  Receipt Date: 20101213
  Transmission Date: 20110411
  Serious: Yes (Death, Other)
  Sender: FDA-Public Use
  Company Number: JP-JNJFOC-20091204992

PATIENT
  Sex: Female
  Weight: 50 kg

DRUGS (20)
  1. DOXORUBICIN HCL [Suspect]
     Indication: OVARIAN CANCER RECURRENT
     Dosage: CYCLE 1
     Route: 042
  2. DOXORUBICIN HCL [Suspect]
     Dosage: CYCLE 2
     Route: 042
  3. DOXORUBICIN HCL [Suspect]
     Dosage: CYCLE 3
     Route: 042
  4. DOXORUBICIN HCL [Suspect]
     Dosage: CYCLE 4
     Route: 042
  5. ADALAT [Concomitant]
     Indication: HYPERTENSION
     Route: 048
  6. HEPARIN [Concomitant]
     Indication: PALMAR-PLANTAR ERYTHRODYSAESTHESIA SYNDROME
     Route: 061
  7. MAGNESIUM OXIDE [Concomitant]
     Indication: CONSTIPATION
     Route: 048
  8. DAI KENCHU TO [Concomitant]
     Route: 048
  9. SHAKUYAKU-K ANZO-TO [Concomitant]
  10. DEQUALINIUM CHLORIDE [Concomitant]
     Indication: PHARYNGITIS
     Route: 048
  11. NON-PYRINE COLD PREPARATION [Concomitant]
     Indication: NASOPHARYNGITIS
     Route: 048
  12. GRAN [Concomitant]
     Indication: NEUTROPENIA
     Route: 058
  13. GRAN [Concomitant]
     Route: 058
  14. GRAN [Concomitant]
     Route: 058
  15. GRAN [Concomitant]
     Indication: WHITE BLOOD CELL COUNT DECREASED
     Route: 058
  16. GRAN [Concomitant]
     Route: 058
  17. GRAN [Concomitant]
     Route: 058
  18. BETAMETHASONE [Concomitant]
     Indication: PALMAR-PLANTAR ERYTHRODYSAESTHESIA SYNDROME
     Route: 061
  19. LOXONIN [Concomitant]
     Route: 048
  20. CONCENTRATED HUMAN RED BLOOD CELLS [Concomitant]
     Indication: ANAEMIA
     Route: 041

REACTIONS (4)
  - ANAEMIA [None]
  - NEUTROPENIA [None]
  - OVARIAN CANCER [None]
  - WHITE BLOOD CELL COUNT DECREASED [None]
